FAERS Safety Report 9915796 (Version 1)
Quarter: 2014Q1

REPORT INFORMATION
  Report Type: Spontaneous
  Country: US (occurrence: None)
  Receive Date: 20140219
  Receipt Date: 20140219
  Transmission Date: 20141002
  Serious: Yes (Life-Threatening, Hospitalization, Disabling)
  Sender: FDA-Public Use
  Company Number: None

PATIENT
  Age: 41 Year
  Sex: Female
  Weight: 58.97 kg

DRUGS (9)
  1. PREMARIN [Suspect]
     Indication: PREMATURE MENOPAUSE
     Route: 048
     Dates: start: 1984, end: 2007
  2. FONDAPARINUX [Concomitant]
  3. OVMBALTA [Concomitant]
  4. OMEPRAZOLE [Concomitant]
  5. DIOVAN [Concomitant]
  6. AMLODIPINE BESVLATE [Concomitant]
  7. MAXALT [Concomitant]
  8. MELATONIN [Concomitant]
  9. VITAMIN D 3 [Concomitant]

REACTIONS (1)
  - Thrombosis [None]
